FAERS Safety Report 8880718 (Version 4)
Quarter: 2012Q4

REPORT INFORMATION
  Report Type: 
  Country: US (occurrence: US)
  Receive Date: 20121101
  Receipt Date: 20121211
  Transmission Date: 20130627
  Serious: Yes (Death, Other)
  Sender: FDA-Public Use
  Company Number: US-PURDUE-USA-2012-0095062

PATIENT
  Age: 34 Year
  Sex: Female

DRUGS (5)
  1. OXYCONTIN (NDA 22-272) [Suspect]
     Indication: PROCEDURAL PAIN
     Dosage: 1 tablet, tid
     Route: 048
  2. OXYCONTIN (NDA 22-272) [Suspect]
     Indication: CYSTITIS INTERSTITIAL
  3. FENTANYL [Suspect]
     Indication: PAIN
     Dosage: 1 Patch, see text
     Route: 062
  4. XANAX [Suspect]
     Indication: PRODUCT USED FOR UNKNOWN INDICATION
     Dosage: 1 tablet, tid
     Route: 048
  5. PERCOCET                           /00867901/ [Suspect]
     Indication: PAIN
     Dosage: 1 tablet, prn
     Route: 048

REACTIONS (2)
  - Accidental overdose [Fatal]
  - Cystitis interstitial [Unknown]
